FAERS Safety Report 8413050-5 (Version None)
Quarter: 2012Q2

REPORT INFORMATION
  Report Type: 
  Country: None (occurrence: None)
  Receive Date: 20120605
  Receipt Date: 20120530
  Transmission Date: 20120825
  Serious: Yes (Death, Other)
  Sender: FDA-Public Use
  Company Number: US-CELGENEUS-163-21880-12053648

PATIENT

DRUGS (1)
  1. REVLIMID [Suspect]
     Dosage: 25 MILLIGRAM
     Route: 048

REACTIONS (10)
  - NEUTROPENIA [None]
  - DEATH [None]
  - ENCEPHALOPATHY [None]
  - FATIGUE [None]
  - NEUTROPHIL COUNT DECREASED [None]
  - OESOPHAGEAL VARICES HAEMORRHAGE [None]
  - ARTHRITIS [None]
  - RASH [None]
  - DIARRHOEA [None]
  - DEHYDRATION [None]
